FAERS Safety Report 16203621 (Version 1)
Quarter: 2019Q2

REPORT INFORMATION
  Report Type: Report from Study
  Country: CL (occurrence: CL)
  Receive Date: 20190416
  Receipt Date: 20190416
  Transmission Date: 20190711
  Serious: Yes (Other)
  Sender: FDA-Public Use
  Company Number: CL-UCBSA-2019008387

PATIENT
  Age: 39 Year
  Sex: Female

DRUGS (13)
  1. PREDNISONE. [Concomitant]
     Active Substance: PREDNISONE
     Indication: RASH
     Dosage: 05 MG, ONCE DAILY (QD)
     Route: 048
     Dates: start: 201901, end: 20190109
  2. METHOTREXATE. [Concomitant]
     Active Substance: METHOTREXATE
     Indication: SPONDYLOARTHROPATHY
     Dosage: 15 MG, WEEKLY (QW)
     Route: 048
  3. PREDNISONE. [Concomitant]
     Active Substance: PREDNISONE
     Indication: RASH GENERALISED
     Dosage: 05 MG, 4X/DAY (QID)
     Route: 048
     Dates: start: 20190110, end: 20190113
  4. PREDNISONE. [Concomitant]
     Active Substance: PREDNISONE
     Dosage: 5 MG, ONCE DAILY (QD)
     Route: 048
     Dates: start: 20190120, end: 20190122
  5. CERTOLIZUMAB PEGOL [Suspect]
     Active Substance: CERTOLIZUMAB PEGOL
     Indication: SPONDYLOARTHROPATHY
     Dosage: 400 MG, EV 4 WEEKS
     Route: 058
     Dates: start: 20180703, end: 20181022
  6. FOLIC ACID. [Concomitant]
     Active Substance: FOLIC ACID
     Indication: PRODUCT USED FOR UNKNOWN INDICATION
     Dosage: 01 MG, ONCE DAILY (QD)
  7. ISONIAZIDE [Concomitant]
     Active Substance: ISONIAZID
     Indication: LATENT TUBERCULOSIS
     Dosage: 300 MG, ONCE DAILY (QD)
     Dates: start: 201806, end: 201812
  8. OMEPRAZOLE. [Concomitant]
     Active Substance: OMEPRAZOLE
     Indication: PRODUCT USED FOR UNKNOWN INDICATION
     Dosage: 30 MG, ONCE DAILY (QD)
  9. CERTOLIZUMAB PEGOL [Suspect]
     Active Substance: CERTOLIZUMAB PEGOL
     Dosage: 200 MG, WEEKLY (QW)
     Route: 048
     Dates: start: 20181023, end: 20181220
  10. PREDNISONE. [Concomitant]
     Active Substance: PREDNISONE
     Dosage: 05 MG, 3X/DAY (TID)
     Route: 048
     Dates: start: 20190114, end: 20190116
  11. PREDNISONE. [Concomitant]
     Active Substance: PREDNISONE
     Dosage: 05 MG, 2X/DAY (BID)
     Route: 048
     Dates: start: 20190117, end: 20190119
  12. CALCIUM + VITAMIN D [Concomitant]
     Active Substance: CALCIUM\VITAMIN D
     Indication: PRODUCT USED FOR UNKNOWN INDICATION
     Dosage: 1 DF, ONCE DAILY (QD)
  13. OMEPRAZOLE. [Concomitant]
     Active Substance: OMEPRAZOLE
     Dosage: 20 MG, ONCE DAILY (QD)

REACTIONS (6)
  - Dizziness [Recovered/Resolved]
  - Rash generalised [Recovered/Resolved]
  - Odynophagia [Recovered/Resolved]
  - Snoring [Recovered/Resolved]
  - Intentional product misuse [Unknown]
  - Dysphagia [Recovered/Resolved]

NARRATIVE: CASE EVENT DATE: 20181023
